FAERS Safety Report 9423446 (Version 1)
Quarter: 2013Q3

REPORT INFORMATION
  Report Type: Spontaneous
  Country: US (occurrence: US)
  Receive Date: 20130726
  Receipt Date: 20130726
  Transmission Date: 20140515
  Serious: No
  Sender: FDA-Public Use
  Company Number: US-GALDERMA-US12415614

PATIENT
  Age: 17 Year
  Sex: Male

DRUGS (3)
  1. DIFFERIN (ADAPALENE) GEL, 0.3% [Suspect]
     Indication: ACNE
     Route: 061
     Dates: start: 20121026
  2. UNSPECIFIED ANTIBIOTIC [Suspect]
     Indication: ACNE
     Route: 048
  3. TEA TREE OIL CLEANSER [Suspect]
     Route: 061

REACTIONS (1)
  - Dry skin [Not Recovered/Not Resolved]
